FAERS Safety Report 21151673 (Version 1)
Quarter: 2022Q3

REPORT INFORMATION
  Report Type: Spontaneous
  Country: JP (occurrence: JP)
  Receive Date: 20220730
  Receipt Date: 20220730
  Transmission Date: 20221027
  Serious: Yes (Death, Hospitalization, Other)
  Sender: FDA-Public Use
  Company Number: JP-AMGEN-JPNSP2022129877

PATIENT
  Age: 53 Year
  Sex: Female

DRUGS (1)
  1. BLINCYTO [Suspect]
     Active Substance: BLINATUMOMAB
     Indication: Acute lymphocytic leukaemia
     Dosage: UNK
     Route: 065

REACTIONS (7)
  - Multiple organ dysfunction syndrome [Fatal]
  - Engraftment syndrome [Unknown]
  - Pulmonary alveolar haemorrhage [Unknown]
  - Respiratory disorder [Recovering/Resolving]
  - Acute graft versus host disease [Unknown]
  - Venoocclusive liver disease [Unknown]
  - Drug ineffective [Unknown]
